FAERS Safety Report 5331218-1 (Version None)
Quarter: 2007Q2

REPORT INFORMATION
  Report Type: 
  Country: None (occurrence: None)
  Receive Date: 20070522
  Receipt Date: 20070515
  Transmission Date: 20071010
  Serious: Yes (Congenital Anomaly)
  Sender: FDA-Public Use
  Company Number: GB-MERCK-0705USA03207

PATIENT

DRUGS (9)
  1. PRINIVIL [Suspect]
     Indication: HYPERTENSION
     Route: 064
     Dates: start: 19900706, end: 19900901
  2. ASCORBIC ACID [Suspect]
     Route: 064
  3. FERROUS SULFATE [Suspect]
     Route: 064
  4. FOLIC ACID [Suspect]
     Route: 064
  5. HYDRODIURIL [Suspect]
     Route: 064
  6. NIACINAMIDE [Suspect]
     Route: 064
  7. PYRIDOXINE HYDROCHLORIDE [Suspect]
     Route: 064
  8. RIBOFLAVIN [Suspect]
     Route: 064
  9. THIAMINE MONONITRATE [Suspect]
     Route: 064

REACTIONS (2)
  - MULTIPLE CONGENITAL ABNORMALITIES [None]
  - PULMONARY VALVE STENOSIS [None]
